FAERS Safety Report 5727447-5 (Version None)
Quarter: 2008Q2

REPORT INFORMATION
  Report Type: 
  Country: None (occurrence: None)
  Receive Date: 20080505
  Receipt Date: 20080423
  Transmission Date: 20081010
  Serious: Yes (Other)
  Sender: FDA-Public Use
  Company Number: JP-ASTRAZENECA-2008AP02374

PATIENT
  Age: 70 Year
  Sex: Female

DRUGS (2)
  1. IRESSA [Suspect]
     Indication: NON-SMALL CELL LUNG CANCER
     Route: 048
     Dates: start: 20080101, end: 20080320
  2. IRESSA [Suspect]
     Route: 048
     Dates: start: 20080327

REACTIONS (2)
  - PRURITUS GENERALISED [None]
  - PRURITUS GENITAL [None]
